FAERS Safety Report 5420796-X (Version None)
Quarter: 2007Q3

REPORT INFORMATION
  Report Type: 
  Country: None (occurrence: None)
  Receive Date: 20070821
  Receipt Date: 20070813
  Transmission Date: 20080115
  Serious: Yes (Other)
  Sender: FDA-Public Use
  Company Number: PHBS2007GB13654

PATIENT
  Age: 22 Year
  Sex: Male

DRUGS (1)
  1. CARBAMAZEPINE [Suspect]
     Dosage: 200 MG, BID
     Route: 065

REACTIONS (5)
  - DRY EYE [None]
  - ERYTHEMA OF EYELID [None]
  - FOREIGN BODY SENSATION IN EYES [None]
  - METAPLASIA [None]
  - OCULAR HYPERAEMIA [None]
